FAERS Safety Report 10073705 (Version 3)
Quarter: 2014Q2

REPORT INFORMATION
  Report Type: Spontaneous
  Country: US (occurrence: US)
  Receive Date: 20140411
  Receipt Date: 20140521
  Transmission Date: 20141212
  Serious: Yes (Other)
  Sender: FDA-Public Use
  Company Number: CHPA2014US005183

PATIENT
  Age: 57 Year
  Sex: Female

DRUGS (4)
  1. KERI ORIGINAL [Suspect]
     Indication: DRY SKIN
     Dosage: UNK, QD
     Route: 061
  2. KERI ORIGINAL [Suspect]
     Indication: PRURITUS
  3. KERI ORIGINAL [Suspect]
     Indication: SKIN FISSURES
  4. KERI ORIGINAL [Suspect]
     Indication: OFF LABEL USE

REACTIONS (2)
  - Diabetes mellitus [Recovering/Resolving]
  - Therapeutic response changed [Unknown]
